FAERS Safety Report 7557295-5 (Version None)
Quarter: 2011Q2

REPORT INFORMATION
  Report Type: 
  Country: None (occurrence: None)
  Receive Date: 20110620
  Receipt Date: 20081202
  Transmission Date: 20111010
  Serious: Yes (Death)
  Sender: FDA-Public Use
  Company Number: PHHY2008DE37527

PATIENT
  Sex: Female
  Weight: 44 kg

DRUGS (6)
  1. TAMOXIFEN CITRATE [Concomitant]
  2. LICHTENSTEIN METAMIZOLE SODIUM [Concomitant]
  3. ASPIRIN [Concomitant]
  4. SANDOSTATIN LAR [Suspect]
     Indication: ACROMEGALY
     Dosage: UNK
     Route: 030
     Dates: start: 20081202
  5. METOBETA [Concomitant]
  6. VOTUM /ARG/ [Concomitant]

REACTIONS (3)
  - BREAST CANCER [None]
  - DYSPNOEA [None]
  - CONSTIPATION [None]
